FAERS Safety Report 19381086 (Version 2)
Quarter: 2021Q3

REPORT INFORMATION
  Report Type: Report from Study
  Country: US (occurrence: US)
  Receive Date: 20210607
  Receipt Date: 20210707
  Transmission Date: 20211014
  Serious: Yes (Death, Other)
  Sender: FDA-Public Use
  Company Number: US-ACADIA PHARMACEUTICALS INC.-ACA-2021-PIM-001972

PATIENT
  Sex: Male

DRUGS (6)
  1. NUPLAZID [Suspect]
     Active Substance: PIMAVANSERIN TARTRATE
     Indication: DELUSION
  2. NUPLAZID [Suspect]
     Active Substance: PIMAVANSERIN TARTRATE
     Indication: HALLUCINATION
  3. MSIR [Concomitant]
     Active Substance: MORPHINE SULFATE
  4. ATROPINE. [Concomitant]
     Active Substance: ATROPINE
     Dosage: PRN
  5. NUPLAZID [Suspect]
     Active Substance: PIMAVANSERIN TARTRATE
     Indication: PARKINSON^S DISEASE PSYCHOSIS
     Dosage: 34 MILLIGRAM, QD
     Route: 048
     Dates: start: 20210409, end: 202104
  6. ATIVAN [Concomitant]
     Active Substance: LORAZEPAM
     Dosage: PRN

REACTIONS (3)
  - Dementia [Recovered/Resolved]
  - Parkinson^s disease [Recovered/Resolved]
  - Pneumonia aspiration [Recovered/Resolved]
